FAERS Safety Report 9461433 (Version 1)
Quarter: 2013Q3

REPORT INFORMATION
  Report Type: Spontaneous
  Country: US (occurrence: None)
  Receive Date: 20130814
  Receipt Date: 20130814
  Transmission Date: 20140515
  Serious: Yes (Other)
  Sender: FDA-Public Use
  Company Number: None

PATIENT
  Age: 49 Year
  Sex: Female
  Weight: 77.11 kg

DRUGS (1)
  1. SEROQUEL [Suspect]
     Indication: BIPOLAR DISORDER
     Dosage: 2 PILLS ONCE DAILY TAKEN BY MOUTH

REACTIONS (4)
  - Retinal vascular occlusion [None]
  - Hypertension [None]
  - Blood cholesterol increased [None]
  - Weight increased [None]
